FAERS Safety Report 7751358-7 (Version None)
Quarter: 2011Q3

REPORT INFORMATION
  Report Type: 
  Country: None (occurrence: None)
  Receive Date: 20110914
  Receipt Date: 20110830
  Transmission Date: 20111222
  Serious: Yes (Other)
  Sender: FDA-Public Use
  Company Number: CA-ELI_LILLY_AND_COMPANY-CA201108008884

PATIENT
  Sex: Male

DRUGS (7)
  1. ZYPREXA [Suspect]
     Dosage: 5 MG, UNKNOWN
  2. VALPROATE SODIUM [Concomitant]
  3. LITHIUM [Concomitant]
  4. ZYPREXA [Suspect]
     Indication: BIPOLAR DISORDER
     Dosage: 15 MG, EACH EVENING
  5. ZYPREXA [Suspect]
     Dosage: 10 MG, EACH EVENING
  6. SERAX [Concomitant]
  7. CLONAZEPAM [Concomitant]

REACTIONS (4)
  - DIABETES MELLITUS [None]
  - URINARY TRACT INFECTION [None]
  - WHITE BLOOD CELL COUNT INCREASED [None]
  - CONVULSION [None]
